FAERS Safety Report 22532454 (Version 1)
Quarter: 2023Q2

REPORT INFORMATION
  Report Type: Report from Study
  Country: FR (occurrence: FR)
  Receive Date: 20230607
  Receipt Date: 20230607
  Transmission Date: 20230722
  Serious: Yes (Hospitalization, Other)
  Sender: FDA-Public Use
  Company Number: FR-002147023-NVSC2023FR118646

PATIENT
  Age: 75 Year
  Sex: Female
  Weight: 76 kg

DRUGS (6)
  1. BORTEZOMIB [Suspect]
     Active Substance: BORTEZOMIB
     Indication: Primary amyloidosis
     Dosage: 1.30 MG/M2, QW
     Route: 058
     Dates: start: 20220930
  2. CYCLOPHOSPHAMIDE [Suspect]
     Active Substance: CYCLOPHOSPHAMIDE
     Indication: Primary amyloidosis
  3. DARATUMUMAB [Suspect]
     Active Substance: DARATUMUMAB
     Indication: Primary amyloidosis
     Dosage: UNK
     Dates: start: 20220930
  4. CYCLOPHOSPHAMIDE [Suspect]
     Active Substance: CYCLOPHOSPHAMIDE
     Dosage: UNK
     Dates: start: 20220930, end: 20230203
  5. DEXAMETHASONE [Suspect]
     Active Substance: DEXAMETHASONE
     Indication: Primary amyloidosis
     Dosage: UNK
     Dates: start: 20220930
  6. REVLIMID [Suspect]
     Active Substance: LENALIDOMIDE
     Indication: Primary amyloidosis
     Dosage: UNK
     Route: 065
     Dates: start: 20230317

REACTIONS (10)
  - Lower respiratory tract infection [Unknown]
  - Asthenia [Unknown]
  - COVID-19 [Unknown]
  - Cardiac failure [Unknown]
  - Anaemia [Unknown]
  - Pneumonia [Unknown]
  - Abdominal pain upper [Unknown]
  - Chills [Unknown]
  - C-reactive protein increased [Unknown]
  - Cough [Unknown]

NARRATIVE: CASE EVENT DATE: 20230512
